FAERS Safety Report 9778634 (Version 1)
Quarter: 2013Q4

REPORT INFORMATION
  Report Type: Spontaneous
  Country: ES (occurrence: ES)
  Receive Date: 20131223
  Receipt Date: 20131223
  Transmission Date: 20140711
  Serious: Yes (Hospitalization)
  Sender: FDA-Public Use
  Company Number: ES-009507513-1312ESP009322

PATIENT
  Age: 50 Year
  Sex: Male

DRUGS (2)
  1. ISENTRESS [Suspect]
     Indication: HIV INFECTION
     Dosage: UNK
     Route: 048
     Dates: end: 2013
  2. KIVEXA [Concomitant]
     Indication: HIV INFECTION
     Dosage: 600 MG/ 300 MG
     Route: 048

REACTIONS (2)
  - Unevaluable event [Unknown]
  - Blood creatine phosphokinase increased [Recovered/Resolved]
